FAERS Safety Report 4408079-8 (Version None)
Quarter: 2004Q3

REPORT INFORMATION
  Report Type: 
  Country: None (occurrence: None)
  Receive Date: 20040722
  Receipt Date: 20010725
  Transmission Date: 20050211
  Serious: Yes (Death, Hospitalization)
  Sender: FDA-Public Use
  Company Number: E127538

PATIENT
  Age: 55 Year
  Sex: Male

DRUGS (6)
  1. (OXALIPLATIN) - SOLUTION - 100 MG/M2 [Suspect]
     Indication: PANCREATIC CARCINOMA METASTATIC
     Dosage: 100 MG/M2 ON DAY 2 INTRAVENOUS NOS
     Route: 042
     Dates: start: 20010608, end: 20010608
  2. GEMCITABINE-SOLUTION-1000 MG/M2 [Suspect]
     Dosage: 1000 MG/M2 ON DAY 1, Q2W INTRAVENOUS
     Route: 042
     Dates: start: 20010607, end: 20010607
  3. DUROGESIC (FENTANYL) [Concomitant]
  4. AMINOMAX [Concomitant]
  5. SOLU-MEDROL [Concomitant]
  6. MORPHINE [Concomitant]

REACTIONS (8)
  - BILIARY DILATATION [None]
  - BILIARY TRACT DISORDER [None]
  - JAUNDICE [None]
  - METASTASES TO LIVER [None]
  - NEUTROPHIL COUNT DECREASED [None]
  - PERITONITIS [None]
  - SEPTIC SHOCK [None]
  - WHITE BLOOD CELL COUNT DECREASED [None]
